FAERS Safety Report 18420109 (Version 1)
Quarter: 2020Q4

REPORT INFORMATION
  Report Type: Spontaneous
  Country: US (occurrence: US)
  Receive Date: 20201023
  Receipt Date: 20201023
  Transmission Date: 20210114
  Serious: Yes (Death, Hospitalization, Other)
  Sender: FDA-Public Use
  Company Number: US-ELI_LILLY_AND_COMPANY-US202010008001

PATIENT
  Age: 64 Year
  Sex: Female

DRUGS (6)
  1. ZYPREXA [Suspect]
     Active Substance: OLANZAPINE
     Indication: SCHIZOPHRENIA
     Dosage: 2.5 MG, BID
     Route: 065
     Dates: start: 2002
  2. PROPANOLOL [PROPRANOLOL] [Concomitant]
     Active Substance: PROPRANOLOL HYDROCHLORIDE
     Indication: PRODUCT USED FOR UNKNOWN INDICATION
  3. ZYPREXA [Suspect]
     Active Substance: OLANZAPINE
     Indication: SCHIZOPHRENIA
     Dosage: 10 MG, EACH EVENING (NIGHT)
     Route: 065
     Dates: start: 201104
  4. KLONOPIN [Concomitant]
     Active Substance: CLONAZEPAM
     Indication: PRODUCT USED FOR UNKNOWN INDICATION
  5. ZYPREXA [Suspect]
     Active Substance: OLANZAPINE
     Dosage: 2.5 MG, EACH MORNING
     Route: 065
  6. CLONAZEPAM. [Concomitant]
     Active Substance: CLONAZEPAM
     Indication: PRODUCT USED FOR UNKNOWN INDICATION

REACTIONS (12)
  - Cardiac arrest [Fatal]
  - Cardiac failure congestive [Unknown]
  - Weight increased [Unknown]
  - Brain death [Fatal]
  - Liver disorder [Unknown]
  - Encephalopathy [Unknown]
  - Pulmonary oedema [Fatal]
  - Overdose [Unknown]
  - Urinary tract infection [Fatal]
  - Hypotension [Fatal]
  - Decubitus ulcer [Not Recovered/Not Resolved]
  - Delirium [Fatal]

NARRATIVE: CASE EVENT DATE: 201103
